FAERS Safety Report 12563558 (Version 3)
Quarter: 2017Q3

REPORT INFORMATION
  Report Type: Report from Study
  Country: US (occurrence: US)
  Receive Date: 20160715
  Receipt Date: 20170824
  Transmission Date: 20171127
  Serious: Yes (Other)
  Sender: FDA-Public Use
  Company Number: US-GILEAD-2016-0222807

PATIENT
  Age: 63 Year
  Sex: Female
  Weight: 82.99 kg

DRUGS (5)
  1. LEDIPASVIR/SOFOSBUVIR [Suspect]
     Active Substance: LEDIPASVIR\SOFOSBUVIR
     Indication: CHRONIC HEPATITIS C
     Dosage: 1 DF, QD
     Route: 048
     Dates: start: 20151222, end: 20160316
  2. VENLAFAXINE HCL [Concomitant]
     Active Substance: VENLAFAXINE HYDROCHLORIDE
  3. LOSARTAN POTASSIUM. [Concomitant]
     Active Substance: LOSARTAN POTASSIUM
  4. MULTIVITAMINS                      /00116001/ [Concomitant]
     Active Substance: VITAMINS
  5. ASCORBIC ACID. [Concomitant]
     Active Substance: ASCORBIC ACID

REACTIONS (2)
  - Drug ineffective [Unknown]
  - Hepatitis C [Unknown]

NARRATIVE: CASE EVENT DATE: 20160621
